FAERS Safety Report 17057617 (Version 1)
Quarter: 2019Q4

REPORT INFORMATION
  Report Type: Spontaneous
  Country: US (occurrence: US)
  Receive Date: 20191022
  Receipt Date: 20191022
  Transmission Date: 20200122
  Serious: No
  Sender: FDA-Public Use
  Company Number: None

PATIENT
  Age: 76 Year
  Sex: Female

DRUGS (4)
  1. DUPIXENT [Suspect]
     Active Substance: DUPILUMAB
     Indication: PSORIASIS
  2. DUPIXENT [Suspect]
     Active Substance: DUPILUMAB
  3. DUPIXENT [Suspect]
     Active Substance: DUPILUMAB
     Indication: ECZEMA
     Dosage: ?          OTHER DOSE:300/2 MG/ML;?
     Dates: start: 20190904, end: 20191022
  4. DUPIXENT [Suspect]
     Active Substance: DUPILUMAB

REACTIONS (1)
  - Vomiting [None]

NARRATIVE: CASE EVENT DATE: 20191022
